APPROVED DRUG PRODUCT: ZINC CHLORIDE
Active Ingredient: ZINC CHLORIDE
Strength: EQ 1MG ZINC/ML
Dosage Form/Route: INJECTABLE;INJECTION
Application: A217625 | Product #001 | TE Code: AP
Applicant: RK PHARMA INC
Approved: Apr 14, 2025 | RLD: No | RS: No | Type: RX